FAERS Safety Report 25588495 (Version 1)
Quarter: 2025Q3

REPORT INFORMATION
  Report Type: Report from Study
  Country: MX (occurrence: MX)
  Receive Date: 20250722
  Receipt Date: 20250722
  Transmission Date: 20251020
  Serious: Yes (Other)
  Sender: AMGEN
  Company Number: MX-AMGEN-MEXSL2025139894

PATIENT
  Age: 29 Year
  Sex: Male
  Weight: 82.2 kg

DRUGS (1)
  1. BLINCYTO [Suspect]
     Active Substance: BLINATUMOMAB
     Indication: Lymphocytic leukaemia
     Route: 065
     Dates: start: 20250630

REACTIONS (5)
  - Hepatitis toxic [Unknown]
  - Blood sodium decreased [Unknown]
  - Platelet count decreased [Unknown]
  - Haemoglobin decreased [Unknown]
  - Neutrophil count decreased [Unknown]

NARRATIVE: CASE EVENT DATE: 20250714
